FAERS Safety Report 12069618 (Version 5)
Quarter: 2016Q2

REPORT INFORMATION
  Report Type: Spontaneous
  Country: US (occurrence: US)
  Receive Date: 20160211
  Receipt Date: 20160509
  Transmission Date: 20160815
  Serious: Yes (Hospitalization)
  Sender: FDA-Public Use
  Company Number: US-ASTRAZENECA-2016SE13911

PATIENT
  Sex: Female

DRUGS (1)
  1. BRILINTA [Suspect]
     Active Substance: TICAGRELOR
     Indication: ACUTE CORONARY SYNDROME
     Route: 048

REACTIONS (9)
  - Abdominal discomfort [Unknown]
  - Decreased appetite [Unknown]
  - Urinary tract infection [Unknown]
  - Weight decreased [Unknown]
  - Malaise [Unknown]
  - Sinusitis [Unknown]
  - Arthritis [Unknown]
  - Fatigue [Unknown]
  - Dyspnoea [Unknown]
